FAERS Safety Report 21516892 (Version 1)
Quarter: 2022Q4

REPORT INFORMATION
  Report Type: Spontaneous
  Country: US (occurrence: US)
  Receive Date: 20221028
  Receipt Date: 20221028
  Transmission Date: 20230113
  Serious: No
  Sender: FDA-Public Use
  Company Number: ENDG22-00006

PATIENT
  Sex: Male

DRUGS (1)
  1. ZOLPIDEM TARTRATE [Suspect]
     Active Substance: ZOLPIDEM TARTRATE
     Indication: Middle insomnia
     Dosage: 1 DF, PRN
     Route: 048

REACTIONS (4)
  - Incorrect route of product administration [Unknown]
  - Drug ineffective [Unknown]
  - Product packaging issue [Unknown]
  - Product taste abnormal [Unknown]

NARRATIVE: CASE EVENT DATE: 20210101
